FAERS Safety Report 4348796-1 (Version None)
Quarter: 2004Q2

REPORT INFORMATION
  Report Type: 
  Country: None (occurrence: None)
  Receive Date: 20040423
  Receipt Date: 20040415
  Transmission Date: 20050107
  Serious: Yes (Death)
  Sender: FDA-Public Use
  Company Number: 2004209433JP

PATIENT
  Age: 66 Year
  Sex: Male

DRUGS (5)
  1. CYCLOPHOSPHAMIDE [Suspect]
     Indication: NON-HODGKIN'S LYMPHOMA
     Dosage: TOTAL DOSE: 10,330 MG/8 CYCLES
  2. ADRIACIN(DOXORUBICIN HYDROCHLORIDE) POWDER, STERILE [Suspect]
     Indication: NON-HODGKIN'S LYMPHOMA
     Dosage: TOTAL DOSE: 668 MG/8 CYCLES
  3. VINCRISTINE [Suspect]
     Indication: NON-HODGKIN'S LYMPHOMA
     Dosage: TOTAL DOSE: 16 MG/8 CYCLES
  4. DELTA-CORTEF [Suspect]
     Indication: NON-HODGKIN'S LYMPHOMA
     Dosage: 8 CYCLES
  5. RADIOTHERAPY (RADIOTHERAPY) [Suspect]
     Indication: NON-HODGKIN'S LYMPHOMA
     Dosage: 45 GY/18 FRACTIONS

REACTIONS (4)
  - HEPATIC FAILURE [None]
  - LARGE CELL CARCINOMA OF THE RESPIRATORY TRACT STAGE UNSPECIFIED [None]
  - LUNG SQUAMOUS CELL CARCINOMA STAGE UNSPECIFIED [None]
  - METASTASES TO LIVER [None]
